FAERS Safety Report 5838535-7 (Version None)
Quarter: 2008Q3

REPORT INFORMATION
  Report Type: 
  Country: None (occurrence: None)
  Receive Date: 20080806
  Receipt Date: 20080729
  Transmission Date: 20090109
  Serious: Yes (Death)
  Sender: FDA-Public Use
  Company Number: 163-21880-07121081

PATIENT
  Age: 67 Year
  Sex: Female

DRUGS (16)
  1. REVLIMID [Suspect]
     Indication: MULTIPLE MYELOMA
     Dosage: 25 MG, 1 IN 1 D, ORAL
     Route: 048
     Dates: start: 20070705, end: 20070801
  2. ZOMETA [Concomitant]
  3. OSCAL (CALCIUM CARBONATE) [Concomitant]
  4. EVISTA (RALOXIFENE HYDROCHLORIDE) (TABLETS) [Concomitant]
  5. METATOX (HEBRAL PREPARATION) [Concomitant]
  6. KLS (HERBAL PREPARATION) [Concomitant]
  7. ENVIROZON (HERBAL PREPARATION) [Concomitant]
  8. IMMUNO BOOST (HERBAL PREPARATION) [Concomitant]
  9. PRIMROSE (EVENING PRIMOSE OIL) [Concomitant]
  10. CIRCU PLUS (HERBAL PREPARATION) [Concomitant]
  11. HEPACHOL (HEPACHOLONE SORBITOL) [Concomitant]
  12. DETOX HM (HERBRAL PREPARATION) [Concomitant]
  13. DIADREN FORTE (HERBRAL PREPARATION) [Concomitant]
  14. CAL LAC PLUS (CALCIUM) [Concomitant]
  15. ALPHA GREEN (HERBRAL PREPARATION) [Concomitant]
  16. PH ENHANCER (HERBAL PREPARATION) [Concomitant]

REACTIONS (2)
  - CARDIAC ARREST [None]
  - PNEUMONIA [None]
